FAERS Safety Report 5419461-4 (Version None)
Quarter: 2007Q3

REPORT INFORMATION
  Report Type: 
  Country: None (occurrence: None)
  Receive Date: 20070820
  Receipt Date: 20070817
  Transmission Date: 20080115
  Serious: Yes (Hospitalization)
  Sender: FDA-Public Use
  Company Number: B0483670A

PATIENT
  Age: 58 Year
  Sex: Male

DRUGS (5)
  1. AMOXICILLIN [Suspect]
     Route: 048
     Dates: start: 20070111, end: 20070116
  2. CELESTENE [Suspect]
     Route: 048
     Dates: start: 20070111, end: 20070115
  3. RHINOFLUIMUCIL [Suspect]
     Route: 045
     Dates: start: 20070111
  4. PROPECIA [Concomitant]
     Route: 065
  5. IBUPROFEN TABLETS [Concomitant]
     Route: 065

REACTIONS (11)
  - ACUTE GENERALISED EXANTHEMATOUS PUSTULOSIS [None]
  - EYELID OEDEMA [None]
  - INFLAMMATION [None]
  - LEUKOCYTOSIS [None]
  - LYMPHOPENIA [None]
  - PRURIGO [None]
  - PYREXIA [None]
  - RASH MACULAR [None]
  - RASH PUSTULAR [None]
  - SKIN EXFOLIATION [None]
  - SKIN LESION [None]
